FAERS Safety Report 7334119-2 (Version None)
Quarter: 2011Q1

REPORT INFORMATION
  Report Type: 
  Country: None (occurrence: None)
  Receive Date: 20110302
  Receipt Date: 20110302
  Transmission Date: 20110831
  Serious: Yes (Other)
  Sender: FDA-Public Use
  Company Number: None

PATIENT
  Age: 26 Year
  Sex: Female
  Weight: 56.6996 kg

DRUGS (3)
  1. AMOXICILLIN AND CLAVULANATE POTASSIUM [Suspect]
     Indication: INFLUENZA
     Dosage: ONE TABLET TWICE DAILY PO
     Route: 048
     Dates: start: 20110223, end: 20110228
  2. AMOXICILLIN AND CLAVULANATE POTASSIUM [Suspect]
     Indication: BRONCHITIS
     Dosage: ONE TABLET TWICE DAILY PO
     Route: 048
     Dates: start: 20110223, end: 20110228
  3. AMOXICILLIN AND CLAVULANATE POTASSIUM [Suspect]
     Indication: SINUSITIS
     Dosage: ONE TABLET TWICE DAILY PO
     Route: 048
     Dates: start: 20110223, end: 20110228

REACTIONS (6)
  - RESPIRATORY DISORDER [None]
  - PRODUCTIVE COUGH [None]
  - DIARRHOEA [None]
  - SOMNOLENCE [None]
  - MIDDLE EAR EFFUSION [None]
  - FATIGUE [None]
